FAERS Safety Report 8695071 (Version 4)
Quarter: 2014Q3

REPORT INFORMATION
  Report Type: Spontaneous
  Country: US (occurrence: US)
  Receive Date: 20120731
  Receipt Date: 20140815
  Transmission Date: 20150326
  Serious: Yes (Hospitalization, Other)
  Sender: FDA-Public Use
  Company Number: US-009507513-2011SP050839

PATIENT
  Sex: Female
  Weight: 201.81 kg

DRUGS (1)
  1. NUVARING [Suspect]
     Active Substance: ETHINYL ESTRADIOL\ETONOGESTREL
     Indication: MENORRHAGIA
     Dosage: 0.015 MG-0.120 MG Q4W
     Route: 067
     Dates: start: 200906, end: 200911

REACTIONS (16)
  - Cardiac disorder [Unknown]
  - Chest pain [Recovered/Resolved]
  - Pulmonary embolism [Unknown]
  - Deep vein thrombosis [Unknown]
  - Hypertension [Unknown]
  - Restless legs syndrome [Unknown]
  - Iron deficiency anaemia [Recovered/Resolved]
  - Transfusion [Recovered/Resolved]
  - Off label use [Recovered/Resolved]
  - Anticoagulation drug level below therapeutic [Recovered/Resolved]
  - Sleep apnoea syndrome [Unknown]
  - Arthritis [Unknown]
  - Anticoagulation drug level below therapeutic [Unknown]
  - Gastrooesophageal reflux disease [Unknown]
  - Pulmonary hypertension [Unknown]
  - Antiphospholipid antibodies positive [Unknown]

NARRATIVE: CASE EVENT DATE: 200906
